FAERS Safety Report 9938850 (Version 2)
Quarter: 2014Q1

REPORT INFORMATION
  Report Type: Report from Study
  Country: US (occurrence: US)
  Receive Date: 20140303
  Receipt Date: 20140303
  Transmission Date: 20141002
  Serious: No
  Sender: FDA-Public Use
  Company Number: US-ABBVIE-12P-163-0918890-00

PATIENT
  Sex: Male
  Weight: 81.72 kg

DRUGS (3)
  1. HUMIRA [Suspect]
     Indication: PSORIATIC ARTHROPATHY
     Dosage: DISCONTINUED
     Dates: start: 200606, end: 2012
  2. HUMIRA [Suspect]
     Dates: start: 201212
  3. NAPROXEN [Concomitant]
     Indication: PRODUCT USED FOR UNKNOWN INDICATION

REACTIONS (5)
  - Psoriasis [Recovering/Resolving]
  - Arthralgia [Unknown]
  - Rash [Unknown]
  - Psoriatic arthropathy [Recovering/Resolving]
  - Joint swelling [Recovering/Resolving]
